FAERS Safety Report 11757615 (Version 2)
Quarter: 2018Q1

REPORT INFORMATION
  Report Type: Spontaneous
  Country: US (occurrence: US)
  Receive Date: 20151120
  Receipt Date: 20180327
  Transmission Date: 20180508
  Serious: No
  Sender: FDA-Public Use
  Company Number: US-ASTRAZENECA-2015SF09310

PATIENT
  Sex: Female
  Weight: 48.5 kg

DRUGS (3)
  1. TUDORZA PRESSAIR [Suspect]
     Active Substance: ACLIDINIUM BROMIDE
     Indication: CHRONIC OBSTRUCTIVE PULMONARY DISEASE
     Dosage: 400 UG, ONE INHALATION TWICE DAILY
     Route: 055
     Dates: start: 201510
  2. BROVANA [Concomitant]
     Active Substance: ARFORMOTEROL TARTRATE
     Indication: CHRONIC OBSTRUCTIVE PULMONARY DISEASE
     Dosage: EVERY 12 HOURS
  3. COMBIVENT [Concomitant]
     Active Substance: ALBUTEROL SULFATE\IPRATROPIUM BROMIDE
     Indication: CHRONIC OBSTRUCTIVE PULMONARY DISEASE
     Dosage: DAILY

REACTIONS (5)
  - Product quality issue [Unknown]
  - Drug dose omission [Recovered/Resolved]
  - Dyspnoea [Recovered/Resolved]
  - Malaise [Recovering/Resolving]
  - Eye disorder [Not Recovered/Not Resolved]
